FAERS Safety Report 5909811-4 (Version None)
Quarter: 2008Q4

REPORT INFORMATION
  Report Type: 
  Country: None (occurrence: None)
  Receive Date: 20081002
  Receipt Date: 20080919
  Transmission Date: 20090506
  Serious: Yes (Hospitalization)
  Sender: FDA-Public Use
  Company Number: DE-GDP-08404650

PATIENT
  Sex: Female

DRUGS (2)
  1. METVIXIA [Suspect]
     Indication: ACTINIC KERATOSIS
     Dosage: (1 DF TOPICAL), (1 DF TOPICAL)
     Route: 061
     Dates: start: 20080822, end: 20080822
  2. METVIXIA [Suspect]
     Indication: ACTINIC KERATOSIS
     Dosage: (1 DF TOPICAL), (1 DF TOPICAL)
     Route: 061
     Dates: start: 20080912, end: 20080912

REACTIONS (1)
  - CEREBROVASCULAR ACCIDENT [None]
